FAERS Safety Report 21955819 (Version 1)
Quarter: 2023Q1

REPORT INFORMATION
  Report Type: Spontaneous
  Country: US (occurrence: US)
  Receive Date: 20230206
  Receipt Date: 20230206
  Transmission Date: 20230417
  Serious: No
  Sender: FDA-Public Use
  Company Number: US-AUROBINDO-AUR-APL-2022-050518

PATIENT
  Age: 3 Year
  Sex: Female
  Weight: 6.583 kg

DRUGS (1)
  1. CEFDINIR [Suspect]
     Active Substance: CEFDINIR
     Indication: Urinary tract infection
     Dosage: 2 MILLILITER, TWO TIMES A DAY(FOR 10 DAYS)
     Route: 048

REACTIONS (1)
  - Product storage error [Unknown]
